FAERS Safety Report 11294741 (Version 4)
Quarter: 2015Q4

REPORT INFORMATION
  Report Type: Spontaneous
  Country: US (occurrence: US)
  Receive Date: 20150723
  Receipt Date: 20151103
  Transmission Date: 20160304
  Serious: Yes (Death, Other)
  Sender: FDA-Public Use
  Company Number: PHHY2015US086530

PATIENT
  Age: 80 Year
  Sex: Female

DRUGS (8)
  1. OFATUMUMAB [Suspect]
     Active Substance: OFATUMUMAB
     Indication: B-CELL SMALL LYMPHOCYTIC LYMPHOMA
     Route: 065
  2. BENDAMUSTINE [Suspect]
     Active Substance: BENDAMUSTINE
     Indication: B-CELL SMALL LYMPHOCYTIC LYMPHOMA
     Dosage: SIX CYCLES
     Route: 065
     Dates: start: 201211
  3. RITUXIMAB [Suspect]
     Active Substance: RITUXIMAB
     Dosage: SIX CYCLES
     Route: 065
     Dates: start: 201211
  4. RITUXIMAB [Suspect]
     Active Substance: RITUXIMAB
     Dosage: UNK
     Route: 065
     Dates: start: 201101
  5. FLUDARABINE [Suspect]
     Active Substance: FLUDARABINE PHOSPHATE
     Indication: B-CELL SMALL LYMPHOCYTIC LYMPHOMA
     Dosage: SIX CYCLES
     Route: 065
  6. LENALIDOMIDE [Suspect]
     Active Substance: LENALIDOMIDE
     Indication: B-CELL SMALL LYMPHOCYTIC LYMPHOMA
     Dosage: UNK
     Route: 065
     Dates: start: 201101
  7. LENALIDOMIDE [Suspect]
     Active Substance: LENALIDOMIDE
     Indication: B-CELL SMALL LYMPHOCYTIC LYMPHOMA
  8. RITUXIMAB [Suspect]
     Active Substance: RITUXIMAB
     Indication: B-CELL SMALL LYMPHOCYTIC LYMPHOMA
     Dosage: SIX CYCLES
     Route: 065

REACTIONS (8)
  - Hodgkin^s disease [Unknown]
  - Lymphadenopathy [Unknown]
  - Fatigue [Unknown]
  - Death [Fatal]
  - Epstein-Barr viraemia [Unknown]
  - Night sweats [Unknown]
  - Drug effect incomplete [Unknown]
  - Chronic lymphocytic leukaemia transformation [Unknown]

NARRATIVE: CASE EVENT DATE: 201309
